FAERS Safety Report 6992606-0 (Version None)
Quarter: 2010Q3

REPORT INFORMATION
  Report Type: 
  Country: None (occurrence: None)
  Receive Date: 20100917
  Receipt Date: 20100907
  Transmission Date: 20110219
  Serious: Yes (Other)
  Sender: FDA-Public Use
  Company Number: DE-ROCHE-727088

PATIENT

DRUGS (1)
  1. KEVATRIL [Suspect]
     Indication: PRODUCT USED FOR UNKNOWN INDICATION
     Dosage: MORE THAN 10 MG
     Route: 065

REACTIONS (3)
  - ANXIETY [None]
  - CHEST DISCOMFORT [None]
  - RESTLESSNESS [None]
